FAERS Safety Report 6849553-4 (Version None)
Quarter: 2010Q3

REPORT INFORMATION
  Report Type: 
  Country: None (occurrence: None)
  Receive Date: 20100716
  Receipt Date: 20071002
  Transmission Date: 20110219
  Serious: No
  Sender: FDA-Public Use
  Company Number: US-PFIZER INC-2007083125

PATIENT
  Sex: Female
  Weight: 65 kg

DRUGS (8)
  1. CHANTIX [Suspect]
     Indication: SMOKING CESSATION THERAPY
     Dates: start: 20070923
  2. NEURONTIN [Concomitant]
  3. TOPAMAX [Concomitant]
  4. DRUG, UNSPECIFIED [Concomitant]
  5. LEXAPRO [Concomitant]
  6. TRAZODONE HYDROCHLORIDE [Concomitant]
  7. NEXIUM [Concomitant]
     Indication: GASTROOESOPHAGEAL REFLUX DISEASE
  8. PREMARIN [Concomitant]
     Indication: HYSTERECTOMY

REACTIONS (3)
  - BLADDER DISORDER [None]
  - NAUSEA [None]
  - VOMITING [None]
